FAERS Safety Report 8360268-6 (Version None)
Quarter: 2012Q2

REPORT INFORMATION
  Report Type: 
  Country: None (occurrence: None)
  Receive Date: 20120515
  Receipt Date: 20120508
  Transmission Date: 20120825
  Serious: Yes (Life-Threatening, Other)
  Sender: FDA-Public Use
  Company Number: US-COVIDIEN/TYCO HEALTHCARE/MALLINCKRODT-T201201645

PATIENT
  Age: 64 Year
  Sex: Female

DRUGS (2)
  1. PENNSAID [Suspect]
     Dosage: 4 DROPS EACH KNEE
     Route: 061
  2. PENNSAID [Suspect]
     Indication: ARTHRITIS
     Dosage: 40 DROPS ON EACH KNEE
     Route: 061

REACTIONS (14)
  - HEART RATE ABNORMAL [None]
  - APHAGIA [None]
  - PAIN [None]
  - CHOKING [None]
  - THROAT TIGHTNESS [None]
  - OROPHARYNGEAL PAIN [None]
  - MALAISE [None]
  - BLOOD PRESSURE ABNORMAL [None]
  - DRY MOUTH [None]
  - DRUG INEFFECTIVE [None]
  - DYSPNOEA [None]
  - DIARRHOEA HAEMORRHAGIC [None]
  - DIZZINESS [None]
  - FATIGUE [None]
